FAERS Safety Report 21906468 (Version 5)
Quarter: 2023Q1

REPORT INFORMATION
  Report Type: Report from Study
  Country: US (occurrence: US)
  Receive Date: 20230125
  Receipt Date: 20230315
  Transmission Date: 20230418
  Serious: Yes (Hospitalization, Other)
  Sender: FDA-Public Use
  Company Number: US-VELOXIS PHARMACEUTICALS, INC.-2023-VEL-00040

PATIENT
  Age: 71 Year
  Sex: Female
  Weight: 52.2 kg

DRUGS (23)
  1. ENVARSUS XR [Suspect]
     Active Substance: TACROLIMUS
     Indication: Prophylaxis against transplant rejection
     Dosage: 7 MILLIGRAM, QD
     Route: 048
     Dates: start: 20221209
  2. ENVARSUS XR [Suspect]
     Active Substance: TACROLIMUS
     Dosage: 8 MILLIGRAM, QD
     Route: 048
     Dates: start: 20230113
  3. ENVARSUS XR [Suspect]
     Active Substance: TACROLIMUS
     Dosage: 9 MILLIGRAM, QD
     Route: 048
     Dates: start: 20230120
  4. ENVARSUS XR [Suspect]
     Active Substance: TACROLIMUS
     Dosage: 8 MILLIGRAM, QD
     Route: 048
     Dates: start: 20230127
  5. ENVARSUS XR [Suspect]
     Active Substance: TACROLIMUS
     Dosage: 3 MILLIGRAM, QD
     Route: 048
     Dates: start: 20230217
  6. CELLCEPT [Concomitant]
     Active Substance: MYCOPHENOLATE MOFETIL
     Indication: Prophylaxis against transplant rejection
     Dosage: 500 MILLIGRAM
     Route: 048
     Dates: start: 20221014, end: 20230127
  7. PREDNISONE [Concomitant]
     Active Substance: PREDNISONE
     Indication: Prophylaxis against transplant rejection
     Dosage: 5 MILLIGRAM, QD
     Route: 048
     Dates: start: 20220513
  8. PREDNISONE [Concomitant]
     Active Substance: PREDNISONE
     Dosage: PATIENT WAS INSTRUCTED TO TAKE 2 TABLETS (20MG) OF PREDNISONE AND THEN CONTINUE 2 TABLETS (20MG) BY
     Dates: start: 20230215
  9. PREDNISONE [Concomitant]
     Active Substance: PREDNISONE
     Dosage: DOSE WAS DECREASED FROM 20MG TO 15MG.
     Dates: start: 20230217
  10. PREDNISONE [Concomitant]
     Active Substance: PREDNISONE
     Dosage: DOSE WAS DECREASED AGAIN FROM 15MG TO 5MG WHICH IS THEIR CURRENT DOSAGE OF PREDNISONE.
     Dates: start: 20230224
  11. TYLENOL [Concomitant]
     Active Substance: ACETAMINOPHEN
     Indication: Analgesic therapy
     Dosage: 500 TO 1000 MG
     Route: 048
     Dates: start: 20220104, end: 20230129
  12. ATOVAQUONE [Concomitant]
     Active Substance: ATOVAQUONE
     Indication: Antibiotic therapy
     Dosage: 750 MILLIGRAM, QD
     Route: 048
     Dates: start: 20220812
  13. DIAZEPAM [Concomitant]
     Active Substance: DIAZEPAM
     Indication: Insomnia
     Dosage: 5 MILLIGRAM, QD
     Route: 048
     Dates: start: 20220817
  14. DOCUSATE SODIUM [Concomitant]
     Active Substance: DOCUSATE SODIUM
     Indication: Laxative supportive care
     Dosage: 200 MILLIGRAM, QD
     Route: 048
     Dates: start: 20221209
  15. FUROSEMIDE [Concomitant]
     Active Substance: FUROSEMIDE
     Indication: Swelling
     Dosage: 20 MILLIGRAM, QD
     Route: 048
     Dates: start: 20221209, end: 20230127
  16. HYDROXYZINE [Concomitant]
     Active Substance: HYDROXYZINE HYDROCHLORIDE
     Indication: Anxiety
     Dosage: 10 MILLIGRAM, QD
     Route: 048
     Dates: start: 20220808
  17. MIDODRINE [Concomitant]
     Active Substance: MIDODRINE
     Indication: Hypotension
     Dosage: 15 MILLIGRAM, QD
     Route: 048
     Dates: start: 20220812, end: 20230129
  18. PANTOPRAZOLE [Concomitant]
     Active Substance: PANTOPRAZOLE
     Indication: Gastrooesophageal reflux disease
     Dosage: 40 MILLIGRAM, QD
     Route: 048
     Dates: start: 20221111
  19. ROPINIROLE [Concomitant]
     Active Substance: ROPINIROLE
     Indication: Restless legs syndrome
     Dosage: 6 MILLIGRAM, QD
     Route: 048
     Dates: start: 20230103, end: 20230129
  20. SODIUM BICARBONATE [Concomitant]
     Active Substance: SODIUM BICARBONATE
     Indication: Antacid therapy
     Dosage: 3900 MILLIGRAM, QD
     Route: 048
     Dates: start: 20221208
  21. SODIUM BICARBONATE [Concomitant]
     Active Substance: SODIUM BICARBONATE
     Dosage: 5850 MILLIGRAM
     Route: 048
     Dates: start: 20230203
  22. SODIUM BICARBONATE [Concomitant]
     Active Substance: SODIUM BICARBONATE
     Dosage: 3 TABLETS, BID
  23. MYFORTIC [Concomitant]
     Active Substance: MYCOPHENOLATE SODIUM
     Indication: Prophylaxis against transplant rejection
     Dosage: 360 MILLIGRAM
     Route: 048
     Dates: start: 20230127

REACTIONS (5)
  - Laboratory test abnormal [Not Recovered/Not Resolved]
  - Dehydration [Recovered/Resolved]
  - Acute kidney injury [Not Recovered/Not Resolved]
  - Blood creatinine increased [Not Recovered/Not Resolved]
  - Urinary tract infection [Recovered/Resolved]

NARRATIVE: CASE EVENT DATE: 20230111
